FAERS Safety Report 4736915-4 (Version None)
Quarter: 2005Q3

REPORT INFORMATION
  Report Type: 
  Country: None (occurrence: None)
  Receive Date: 20050805
  Receipt Date: 20050721
  Transmission Date: 20060218
  Serious: Yes (Hospitalization)
  Sender: FDA-Public Use
  Company Number: 232591K05USA

PATIENT
  Age: 46 Year
  Sex: Male

DRUGS (6)
  1. REBIF [Suspect]
     Indication: MULTIPLE SCLEROSIS
     Dosage: 44 MCG, 3 IN 1 WEEKS, SUBCUTANEOUS
     Route: 058
     Dates: start: 20030519
  2. SOLUMEDROL (METHYLPREDNISOLONE0 [Concomitant]
  3. NORTRIPTYLINE (NORTRIPTYLINE /00006501/) [Concomitant]
  4. BACLOFEN [Concomitant]
  5. DETROL LA [Concomitant]
  6. FLOMAX [Concomitant]

REACTIONS (4)
  - DYSARTHRIA [None]
  - MONOPLEGIA [None]
  - URINARY TRACT INFECTION [None]
  - UROSEPSIS [None]
